FAERS Safety Report 7006578-6 (Version None)
Quarter: 2010Q3

REPORT INFORMATION
  Report Type: 
  Country: None (occurrence: None)
  Receive Date: 20100921
  Receipt Date: 20100921
  Transmission Date: 20110219
  Serious: Yes (Hospitalization)
  Sender: FDA-Public Use
  Company Number: None

PATIENT
  Age: 80 Year
  Sex: Male
  Weight: 71 kg

DRUGS (2)
  1. PACLITAXEL [Suspect]
     Indication: MALIGNANT PLEURAL EFFUSION
     Dosage: 88MG QWEEK IV
     Route: 042
     Dates: start: 20100628, end: 20100628
  2. CARBOPLATIN [Suspect]
     Dosage: 158MG QWEEK IV
     Route: 042
     Dates: start: 20100628, end: 20100628

REACTIONS (4)
  - HYPERHIDROSIS [None]
  - PALLOR [None]
  - SYNCOPE [None]
  - UNRESPONSIVE TO STIMULI [None]
